FAERS Safety Report 16740422 (Version 1)
Quarter: 2019Q3

REPORT INFORMATION
  Report Type: Spontaneous
  Country: CN (occurrence: CN)
  Receive Date: 20190826
  Receipt Date: 20190826
  Transmission Date: 20191005
  Serious: Yes (Hospitalization, Other)
  Sender: FDA-Public Use
  Company Number: CN-PFIZER INC-2019363615

PATIENT
  Age: 78 Year
  Sex: Female

DRUGS (2)
  1. LIPITOR [Suspect]
     Active Substance: ATORVASTATIN CALCIUM
     Indication: BLOOD CHOLESTEROL ABNORMAL
  2. LIPITOR [Suspect]
     Active Substance: ATORVASTATIN CALCIUM
     Indication: DYSLIPIDAEMIA
     Dosage: 20 MG, 1X/DAY
     Route: 045
     Dates: start: 20190810, end: 20190816

REACTIONS (3)
  - Off label use [Unknown]
  - Product use issue [Unknown]
  - Liver injury [Recovering/Resolving]

NARRATIVE: CASE EVENT DATE: 20190810
